FAERS Safety Report 9476826 (Version 2)
Quarter: 2013Q3

REPORT INFORMATION
  Report Type: Spontaneous
  Country: US (occurrence: US)
  Receive Date: 20130826
  Receipt Date: 20130826
  Transmission Date: 20140515
  Serious: Yes (Hospitalization, Other)
  Sender: FDA-Public Use
  Company Number: US-009507513-2010SP028335

PATIENT
  Sex: Female
  Weight: 105.69 kg

DRUGS (6)
  1. NUVARING [Suspect]
     Indication: HAEMORRHAGE
     Route: 067
     Dates: start: 20070215, end: 20080519
  2. NUVARING [Suspect]
     Indication: OVARIAN CYST
  3. NUVARING [Suspect]
     Indication: DYSMENORRHOEA
  4. FLOVENT [Concomitant]
     Indication: ASTHMA
     Dates: start: 1980
  5. FIORICET [Concomitant]
     Indication: MIGRAINE
     Dates: start: 2000
  6. PROVENTIL [Concomitant]
     Indication: ASTHMA

REACTIONS (7)
  - Pulmonary embolism [Recovered/Resolved]
  - Antiphospholipid antibodies [Unknown]
  - Glaucoma [Unknown]
  - Optic nerve disorder [Unknown]
  - Headache [Unknown]
  - Hyperlipidaemia [Unknown]
  - Off label use [Unknown]
